FAERS Safety Report 4278905-4 (Version None)
Quarter: 2004Q1

REPORT INFORMATION
  Report Type: 
  Country: None (occurrence: None)
  Receive Date: 20040122
  Receipt Date: 20040122
  Transmission Date: 20041129
  Serious: Yes (Hospitalization)
  Sender: FDA-Public Use
  Company Number: None

PATIENT
  Sex: Male
  Weight: 114 kg

DRUGS (7)
  1. CARBOPLATIN [Suspect]
     Indication: OROPHARYNGEAL CANCER STAGE UNSPECIFIED
     Dosage: AUC 6 /WEEK 1/INTRAVENOUS DRIP
     Route: 041
     Dates: start: 20031210, end: 20031210
  2. TAXOL [Suspect]
     Indication: OROPHARYNGEAL CANCER STAGE UNSPECIFIED
     Dosage: 100MG/M2 WEEKLY X 3 INTRAVENOUS DRIP
     Route: 041
     Dates: start: 20031210, end: 20031224
  3. ALTACE [Concomitant]
  4. LEVOTHYROXINE SODIUM [Concomitant]
  5. NORVASC [Concomitant]
  6. ZOCOR [Concomitant]
  7. ASPIRIN [Concomitant]

REACTIONS (1)
  - SMALL INTESTINAL OBSTRUCTION [None]
